FAERS Safety Report 6486446-9 (Version None)
Quarter: 2009Q4

REPORT INFORMATION
  Report Type: 
  Country: None (occurrence: None)
  Receive Date: 20091210
  Receipt Date: 20091109
  Transmission Date: 20100525
  Serious: No
  Sender: FDA-Public Use
  Company Number: US-BAYER-200939123NA

PATIENT
  Age: 46 Year
  Sex: Male

DRUGS (4)
  1. LEVITRA [Suspect]
     Indication: ERECTILE DYSFUNCTION
     Dosage: UNIT DOSE: 20 MG
     Route: 048
     Dates: start: 20091101
  2. LEVITRA [Suspect]
     Dosage: UNIT DOSE: 10 MG
  3. LEVITRA [Suspect]
     Dosage: UNIT DOSE: 10 MG
     Dates: start: 20091101
  4. CIPROFLOXACIN [Concomitant]
     Dosage: TOOK THE WEEK OF 19-OCT-2009
     Dates: start: 20091001

REACTIONS (1)
  - ERECTILE DYSFUNCTION [None]
